FAERS Safety Report 14813601 (Version 1)
Quarter: 2018Q2

REPORT INFORMATION
  Report Type: Spontaneous
  Country: US (occurrence: US)
  Receive Date: 20180426
  Receipt Date: 20180426
  Transmission Date: 20180711
  Serious: No
  Sender: FDA-Public Use
  Company Number: US-ASTRAZENECA-2018SE41031

PATIENT
  Sex: Male
  Weight: 84.4 kg

DRUGS (1)
  1. PULMICORT TURBUHALER [Suspect]
     Active Substance: BUDESONIDE
     Indication: ASTHMA-CHRONIC OBSTRUCTIVE PULMONARY DISEASE OVERLAP SYNDROME
     Route: 055
     Dates: start: 20180209

REACTIONS (4)
  - Off label use [Unknown]
  - Drug ineffective [Unknown]
  - Cough [Unknown]
  - Device issue [Unknown]
